FAERS Safety Report 10530673 (Version 3)
Quarter: 2014Q4

REPORT INFORMATION
  Report Type: Report from Study
  Country: PR (occurrence: PR)
  Receive Date: 20141021
  Receipt Date: 20141103
  Transmission Date: 20150528
  Serious: Yes (Death, Life-Threatening, Hospitalization, Other)
  Sender: FDA-Public Use
  Company Number: PR-ABBVIE-14K-131-1297024-00

PATIENT
  Age: 74 Year
  Sex: Male

DRUGS (2)
  1. HUMIRA [Suspect]
     Active Substance: ADALIMUMAB
     Indication: PSORIATIC ARTHROPATHY
  2. HUMIRA [Suspect]
     Active Substance: ADALIMUMAB
     Indication: PSORIASIS
     Route: 058
     Dates: start: 20140718, end: 20141001

REACTIONS (23)
  - Staphylococcal sepsis [Unknown]
  - Pulmonary oedema [Fatal]
  - Blood glucose decreased [Recovered/Resolved]
  - Cardiac failure congestive [Unknown]
  - Diarrhoea [Unknown]
  - Dysuria [Unknown]
  - Platelet count decreased [Fatal]
  - Cardiac disorder [Unknown]
  - Hepatic failure [Unknown]
  - Atrophy [Unknown]
  - Constipation [Unknown]
  - Renal failure [Unknown]
  - General physical health deterioration [Fatal]
  - Haematemesis [Unknown]
  - Pyrexia [Not Recovered/Not Resolved]
  - Depression [Unknown]
  - Generalised oedema [Unknown]
  - Drug ineffective [Unknown]
  - Blood glucose decreased [Unknown]
  - General physical health deterioration [Unknown]
  - Bone cancer [Unknown]
  - Hypotension [Fatal]
  - Seizure [Unknown]

NARRATIVE: CASE EVENT DATE: 2014
